FAERS Safety Report 4915677-1 (Version None)
Quarter: 2006Q1

REPORT INFORMATION
  Report Type: 
  Country: None (occurrence: None)
  Receive Date: 20060214
  Receipt Date: 20060203
  Transmission Date: 20060701
  Serious: Yes (Hospitalization)
  Sender: FDA-Public Use
  Company Number: 2006PV007368

PATIENT
  Age: 58 Year
  Sex: Female
  Weight: 72.5755 kg

DRUGS (3)
  1. SYMLIN [Suspect]
     Indication: DIABETES MELLITUS
     Dosage: 120 MCG; QPM; SC
     Route: 058
  2. HUMULIN N [Concomitant]
  3. NOVOLOG [Concomitant]

REACTIONS (2)
  - VENTRICULAR TACHYCARDIA [None]
  - WEIGHT DECREASED [None]
